FAERS Safety Report 17771177 (Version 1)
Quarter: 2020Q2

REPORT INFORMATION
  Report Type: Spontaneous
  Country: US (occurrence: US)
  Receive Date: 20200512
  Receipt Date: 20200512
  Transmission Date: 20200714
  Serious: No
  Sender: FDA-Public Use
  Company Number: US-PERRIGO-19US007198

PATIENT
  Sex: Female

DRUGS (4)
  1. PERMETHRIN. [Suspect]
     Active Substance: PERMETHRIN
     Indication: RASH
     Dosage: UNKNOWN, SINGLE
     Route: 061
     Dates: start: 2019, end: 2019
  2. PERMETHRIN. [Suspect]
     Active Substance: PERMETHRIN
     Dosage: UNKNOWN, BID
     Route: 061
     Dates: start: 201904, end: 201906
  3. PERMETHRIN. [Suspect]
     Active Substance: PERMETHRIN
     Dosage: UNKNOWN, SINGLE
     Route: 061
     Dates: start: 2019, end: 2019
  4. PERMETHRIN. [Suspect]
     Active Substance: PERMETHRIN
     Dosage: UNKNOWN, BID
     Route: 061
     Dates: start: 201904, end: 201906

REACTIONS (2)
  - Drug ineffective for unapproved indication [Unknown]
  - Skin discolouration [Not Recovered/Not Resolved]

NARRATIVE: CASE EVENT DATE: 201904
